FAERS Safety Report 19942106 (Version 6)
Quarter: 2024Q3

REPORT INFORMATION
  Report Type: Spontaneous
  Country: US (occurrence: US)
  Receive Date: 20211012
  Receipt Date: 20240910
  Transmission Date: 20241017
  Serious: Yes (Disabling)
  Sender: ORGANON
  Company Number: US-ORGANON-O2110USA000674

PATIENT
  Sex: Female

DRUGS (5)
  1. SINGULAIR [Suspect]
     Active Substance: MONTELUKAST SODIUM
     Indication: Asthma
     Dosage: TAKE ONE BY MOUTH DAILY
     Route: 048
     Dates: start: 1998, end: 2018
  2. SINGULAIR [Suspect]
     Active Substance: MONTELUKAST SODIUM
     Indication: Hypersensitivity
     Dosage: ONE TABLET, DAILY
     Route: 048
  3. SINGULAIR [Suspect]
     Active Substance: MONTELUKAST SODIUM
     Indication: Rhinitis allergic
  4. CLARITIN [Suspect]
     Active Substance: LORATADINE
     Indication: Rhinitis allergic
     Dosage: 1 TABLET, QD (QS)
     Route: 048
  5. HYDROXYZINE HYDROCHLORIDE [Suspect]
     Active Substance: HYDROXYZINE HYDROCHLORIDE
     Indication: Rhinitis allergic
     Dosage: 1 TABLET, QD (HS)
     Route: 048

REACTIONS (9)
  - Neuropsychological symptoms [Not Recovered/Not Resolved]
  - Anxiety [Recovering/Resolving]
  - Depression [Not Recovered/Not Resolved]
  - Dysphemia [Not Recovered/Not Resolved]
  - Attention deficit hyperactivity disorder [Unknown]
  - Affective disorder [Unknown]
  - Headache [Unknown]
  - Arthropathy [Unknown]
  - Obesity [Unknown]

NARRATIVE: CASE EVENT DATE: 19980101
